FAERS Safety Report 9013871 (Version 3)
Quarter: 2013Q1

REPORT INFORMATION
  Report Type: Spontaneous
  Country: AT (occurrence: AT)
  Receive Date: 20130114
  Receipt Date: 20130221
  Transmission Date: 20140127
  Serious: Yes (Other)
  Sender: FDA-Public Use
  Company Number: AT-ASTRAZENECA-2013SE00815

PATIENT
  Age: 28489 Day
  Sex: Female

DRUGS (1)
  1. ANASTROZOL [Suspect]
     Indication: BREAST CANCER
     Route: 048

REACTIONS (5)
  - Procedural pain [Unknown]
  - Osteolysis [Unknown]
  - Metastasis [Unknown]
  - Neoplasm progression [Unknown]
  - Traumatic fracture [Unknown]
